FAERS Safety Report 10153406 (Version 1)
Quarter: 2014Q2

REPORT INFORMATION
  Report Type: Spontaneous
  Country: US (occurrence: US)
  Receive Date: 20140505
  Receipt Date: 20140505
  Transmission Date: 20141212
  Serious: No
  Sender: FDA-Public Use
  Company Number: US-ASTRAZENECA-2013SE54964

PATIENT
  Age: 62 Year
  Sex: Female

DRUGS (3)
  1. PRILOSEC [Suspect]
     Indication: DIVERTICULITIS
     Route: 048
     Dates: start: 20130521
  2. FLAGYL [Concomitant]
     Indication: DIVERTICULITIS
  3. CIPRO [Concomitant]
     Indication: DIVERTICULITIS

REACTIONS (5)
  - Gastrointestinal inflammation [Recovering/Resolving]
  - Nausea [Recovering/Resolving]
  - Vomiting [Recovering/Resolving]
  - Diarrhoea [Recovering/Resolving]
  - Constipation [Recovering/Resolving]
